FAERS Safety Report 14434861 (Version 1)
Quarter: 2018Q1

REPORT INFORMATION
  Report Type: Spontaneous
  Country: US (occurrence: US)
  Receive Date: 20180125
  Receipt Date: 20180125
  Transmission Date: 20180509
  Serious: No
  Sender: FDA-Public Use
  Company Number: US-009507513-1801USA004145

PATIENT
  Age: 49 Year
  Sex: Female

DRUGS (3)
  1. MOMETASONE FUROATE. [Suspect]
     Active Substance: MOMETASONE FUROATE
     Indication: HYPERSENSITIVITY
     Dosage: 1 TO 2 SQUIRTS IN EACH NOSTRIL DAILY
     Route: 045
     Dates: start: 201712
  2. OXYMETAZOLINE HYDROCHLORIDE. [Concomitant]
     Active Substance: OXYMETAZOLINE HYDROCHLORIDE
     Dosage: NASAL DECONGESTANT EVERY 12 HOUR
     Route: 045
     Dates: start: 20180110
  3. MOMETASONE FUROATE. [Suspect]
     Active Substance: MOMETASONE FUROATE
     Indication: SINUS DISORDER
     Dosage: 1 TO 2 SQUIRTS IN EACH NOSTRIL DAILY
     Route: 045
     Dates: start: 20180109

REACTIONS (6)
  - Nasal discomfort [Not Recovered/Not Resolved]
  - Oral discomfort [Not Recovered/Not Resolved]
  - Insomnia [Not Recovered/Not Resolved]
  - Rhinorrhoea [Not Recovered/Not Resolved]
  - Inappropriate schedule of drug administration [Unknown]
  - Palatal swelling [Not Recovered/Not Resolved]

NARRATIVE: CASE EVENT DATE: 20180110
